FAERS Safety Report 8785947 (Version 1)
Quarter: 2012Q4

REPORT INFORMATION
  Report Type: 
  Country: ID (occurrence: ID)
  Receive Date: 20120914
  Receipt Date: 20120914
  Transmission Date: 20130627
  Serious: Yes (Death, Hospitalization)
  Sender: FDA-Public Use
  Company Number: PHHY2012ID079230

PATIENT
  Age: 48 Year
  Sex: Female

DRUGS (1)
  1. GLIVEC [Suspect]
     Indication: CHRONIC MYELOID LEUKAEMIA
     Dosage: 400 mg, QD
     Route: 048

REACTIONS (8)
  - Pleural effusion [Fatal]
  - Dyspnoea [Fatal]
  - Pleural haemorrhage [Fatal]
  - Haemoglobin decreased [Fatal]
  - Lung infection [Fatal]
  - Decreased immune responsiveness [Fatal]
  - Septic shock [Fatal]
  - Pneumonia [Fatal]
